FAERS Safety Report 11557057 (Version 1)
Quarter: 2015Q3

REPORT INFORMATION
  Report Type: Spontaneous
  Country: US (occurrence: US)
  Receive Date: 20150916
  Receipt Date: 20150916
  Transmission Date: 20151125
  Serious: No
  Sender: FDA-Public Use
  Company Number: US-ELI_LILLY_AND_COMPANY-US200806005708

PATIENT
  Sex: Female

DRUGS (7)
  1. FORTEO [Suspect]
     Active Substance: TERIPARATIDE
     Indication: OSTEOPOROSIS
     Dosage: UNK, UNK
     Dates: start: 20080324, end: 2008
  2. MULTIVITAMINS [Concomitant]
     Active Substance: VITAMINS
  3. AMBIEN [Concomitant]
     Active Substance: ZOLPIDEM TARTRATE
  4. FORTEO [Suspect]
     Active Substance: TERIPARATIDE
     Dates: start: 2008
  5. VITAMIN D [Concomitant]
     Active Substance: CHOLECALCIFEROL
  6. CALCIUM [Concomitant]
     Active Substance: CALCIUM
  7. ALPRAZOLAM. [Concomitant]
     Active Substance: ALPRAZOLAM

REACTIONS (4)
  - Pain in jaw [Not Recovered/Not Resolved]
  - Bone loss [Not Recovered/Not Resolved]
  - Pain in extremity [Not Recovered/Not Resolved]
  - Arthralgia [Not Recovered/Not Resolved]

NARRATIVE: CASE EVENT DATE: 2008
